FAERS Safety Report 26101495 (Version 1)
Quarter: 2025Q4

REPORT INFORMATION
  Report Type: Spontaneous
  Country: EU (occurrence: EU)
  Receive Date: 20251128
  Receipt Date: 20251128
  Transmission Date: 20260117
  Serious: Yes (Death)
  Sender: RANBAXY
  Company Number: EU-SUN PHARMACEUTICAL INDUSTRIES LTD-2025RR-537844

PATIENT
  Age: 64 Year
  Sex: Male

DRUGS (1)
  1. FLUCONAZOLE [Suspect]
     Active Substance: FLUCONAZOLE
     Indication: Prophylaxis
     Dosage: UNK
     Route: 065
     Dates: start: 202409

REACTIONS (1)
  - Drug ineffective [Fatal]

NARRATIVE: CASE EVENT DATE: 20240901
